FAERS Safety Report 8090605-1 (Version None)
Quarter: 2012Q1

REPORT INFORMATION
  Report Type: 
  Country: None (occurrence: None)
  Receive Date: 20120129
  Receipt Date: 20111110
  Transmission Date: 20120608
  Serious: No
  Sender: FDA-Public Use
  Company Number: US-ABBOTT-11P-163-0873952-00

PATIENT
  Sex: Female

DRUGS (10)
  1. HUMIRA [Suspect]
     Indication: PSORIATIC ARTHROPATHY
     Route: 058
     Dates: start: 20060101, end: 20110301
  2. HUMIRA [Suspect]
     Route: 058
     Dates: start: 20110701
  3. PULMICORT-100 [Concomitant]
     Indication: ASTHMA
     Dosage: NEBULIZER AS NEEDED
     Route: 055
  4. SINGULAIR [Concomitant]
     Indication: ASTHMA
  5. ZOCOR [Concomitant]
     Indication: PRODUCT USED FOR UNKNOWN INDICATION
  6. CLARINEX [Concomitant]
     Indication: ASTHMA
  7. ADVAIR DISKUS 100/50 [Concomitant]
     Indication: ASTHMA
  8. XOPINEX [Concomitant]
     Indication: ASTHMA
     Dosage: NEBULIZER AS NEEDED
     Route: 055
  9. MOBIC [Concomitant]
     Indication: PRODUCT USED FOR UNKNOWN INDICATION
  10. NEXIUM [Concomitant]
     Indication: PRODUCT USED FOR UNKNOWN INDICATION

REACTIONS (6)
  - COUGH [None]
  - BRONCHITIS [None]
  - INJECTION SITE PRURITUS [None]
  - DYSPNOEA [None]
  - ASTHMA [None]
  - INJECTION SITE PAIN [None]
